FAERS Safety Report 21086849 (Version 1)
Quarter: 2022Q3

REPORT INFORMATION
  Report Type: Spontaneous
  Country: US (occurrence: None)
  Receive Date: 20220715
  Receipt Date: 20220715
  Transmission Date: 20221026
  Serious: No
  Sender: FDA-Public Use
  Company Number: US-SUPERNUS Pharmaceuticals, Inc.-SUP202205-001296

PATIENT
  Age: 14 Year
  Sex: Male
  Weight: 35.8 kg

DRUGS (5)
  1. QELBREE [Suspect]
     Active Substance: VILOXAZINE HYDROCHLORIDE
     Indication: Attention deficit hyperactivity disorder
     Dosage: 100 MG
     Dates: start: 202202
  2. QELBREE [Suspect]
     Active Substance: VILOXAZINE HYDROCHLORIDE
     Dosage: 200 MG
     Dates: start: 2022
  3. QELBREE [Suspect]
     Active Substance: VILOXAZINE HYDROCHLORIDE
     Dosage: 300 MG
     Dates: start: 2022
  4. QELBREE [Suspect]
     Active Substance: VILOXAZINE HYDROCHLORIDE
     Dates: start: 2022, end: 20220501
  5. HUMIRA [Concomitant]
     Active Substance: ADALIMUMAB
     Indication: Crohn^s disease
     Dosage: NOT PROVIDED

REACTIONS (1)
  - Skin odour abnormal [Recovered/Resolved]

NARRATIVE: CASE EVENT DATE: 20220101
